FAERS Safety Report 5663807-9 (Version None)
Quarter: 2008Q1

REPORT INFORMATION
  Report Type: 
  Country: None (occurrence: None)
  Receive Date: 20080310
  Receipt Date: 20080226
  Transmission Date: 20080703
  Serious: Yes (Hospitalization)
  Sender: FDA-Public Use
  Company Number: 2008004765

PATIENT
  Age: 31 Year
  Sex: Female

DRUGS (3)
  1. CETIRIZINE HCL [Suspect]
     Dosage: 10 MG, ORAL
     Route: 048
     Dates: end: 20080213
  2. HERBAL PREPARATION INGREDIENTS UNKNOWN (HERBAL PREPARATION INGREDIENTS [Concomitant]
  3. MAGNESIUM HYDROXIDE TAB [Concomitant]

REACTIONS (7)
  - DRUG EXPOSURE DURING PREGNANCY [None]
  - EPILEPSY [None]
  - FALL [None]
  - LOSS OF CONSCIOUSNESS [None]
  - PREGNANCY [None]
  - RETROGRADE AMNESIA [None]
  - TONIC CONVULSION [None]
